FAERS Safety Report 4939690-3 (Version None)
Quarter: 2006Q1

REPORT INFORMATION
  Report Type: 
  Country: None (occurrence: None)
  Receive Date: 20060310
  Receipt Date: 20060106
  Transmission Date: 20060701
  Serious: Yes (Hospitalization, Disabling, Other)
  Sender: FDA-Public Use
  Company Number: US-MERCK-0601USA00644

PATIENT
  Age: 60 Year
  Sex: Female
  Weight: 59 kg

DRUGS (7)
  1. FOSAMAX [Suspect]
     Indication: OSTEOPOROSIS
     Route: 048
     Dates: start: 19960501, end: 19980501
  2. SINGULAIR [Concomitant]
     Route: 048
     Dates: start: 19980101
  3. INTAL [Concomitant]
     Route: 065
  4. VENTOLIN [Concomitant]
     Route: 065
  5. PEPCID [Concomitant]
     Indication: GASTROOESOPHAGEAL REFLUX DISEASE
     Route: 065
     Dates: start: 19950101
  6. TUMS [Concomitant]
     Indication: MINERAL SUPPLEMENTATION
     Route: 065
     Dates: start: 19940101
  7. AZMACORT [Concomitant]
     Route: 065
     Dates: start: 19960101, end: 20040101

REACTIONS (17)
  - ASTHMA [None]
  - CANDIDIASIS [None]
  - CATARACT [None]
  - DRUG HYPERSENSITIVITY [None]
  - DYSPHAGIA [None]
  - GASTRITIS [None]
  - GASTROOESOPHAGEAL REFLUX DISEASE [None]
  - HEPATIC LESION [None]
  - HIATUS HERNIA [None]
  - HYPERSENSITIVITY [None]
  - HYPOGLYCAEMIA [None]
  - METAPLASIA [None]
  - OESOPHAGEAL SPASM [None]
  - OPTIC NERVE INJURY [None]
  - OSTEOPOROSIS [None]
  - PHARYNGOLARYNGEAL PAIN [None]
  - REFLUX OESOPHAGITIS [None]
